FAERS Safety Report 20854126 (Version 13)
Quarter: 2024Q3

REPORT INFORMATION
  Report Type: Spontaneous
  Country: IN (occurrence: IN)
  Receive Date: 20220520
  Receipt Date: 20240910
  Transmission Date: 20241016
  Serious: Yes (Other)
  Sender: PFIZER
  Company Number: IN-PFIZER INC-202101566791

PATIENT
  Age: 70 Year
  Sex: Female

DRUGS (10)
  1. PALBOCICLIB [Suspect]
     Active Substance: PALBOCICLIB
     Indication: Breast cancer metastatic
     Dosage: 125 MG, 1X/DAY
     Route: 048
     Dates: start: 20210531, end: 20211103
  2. PALBOCICLIB [Suspect]
     Active Substance: PALBOCICLIB
     Dosage: 125 MG, CYCLIC (125MG OD X 3WKS THEN 1 WK OFF X 3 MONTHS)
     Route: 048
  3. PALBOCICLIB [Suspect]
     Active Substance: PALBOCICLIB
     Dosage: 125 MG, 1X/DAY (OD FOR 3 WEEKS THEN 1WEEK OFF)
     Route: 048
  4. LETROZOLE [Concomitant]
     Active Substance: LETROZOLE
     Dosage: 2.5 MG, 1X/DAY
  5. SHELCAL CT [Concomitant]
     Dosage: 500 MG, 1X/DAY
  6. ZOLEDRONIC ACID [Concomitant]
     Active Substance: ZOLEDRONIC ACID
     Dosage: 4 MG (4MG IV IN 100ML NS ONCE 20 MINS)
     Route: 042
  7. ZOLEDRONIC ACID [Concomitant]
     Active Substance: ZOLEDRONIC ACID
     Dosage: 4 MG (4MG I/V IN 100ML NS ONCE 30 MINS)
  8. VITCOFOL [CYANOCOBALAMIN;FERROUS FUMARATE;FOLIC ACID;PYRIDOXINE HYDROC [Concomitant]
     Dosage: UNK, 2CC I/M EVERY ALTERNATE DAY X 8 DOSES
  9. CALCIROL [COLECALCIFEROL] [Concomitant]
     Dosage: 60000 IU, WEEKLY (ONCE WEEKLY X 6 DOSES)
  10. NUROKIND [Concomitant]
     Dosage: 1 DF, 1X/DAY (1 TABLET 1X/DAY FOR ONE MONTH)
     Route: 048

REACTIONS (25)
  - Leukopenia [Unknown]
  - Eosinophil count decreased [Recovered/Resolved]
  - Red blood cell sedimentation rate increased [Unknown]
  - Hot flush [Unknown]
  - Basophil percentage increased [Not Recovered/Not Resolved]
  - Haematocrit decreased [Not Recovered/Not Resolved]
  - White blood cell count decreased [Not Recovered/Not Resolved]
  - Red blood cell count decreased [Not Recovered/Not Resolved]
  - Mean cell volume increased [Not Recovered/Not Resolved]
  - Mean cell haemoglobin increased [Not Recovered/Not Resolved]
  - Platelet count decreased [Unknown]
  - Red cell distribution width increased [Not Recovered/Not Resolved]
  - Neutrophil count decreased [Not Recovered/Not Resolved]
  - Lymphocyte count increased [Recovered/Resolved]
  - Haemoglobin decreased [Not Recovered/Not Resolved]
  - Monocyte count increased [Recovered/Resolved]
  - Monocyte count decreased [Not Recovered/Not Resolved]
  - Pruritus [Unknown]
  - Rash [Unknown]
  - Fatigue [Unknown]
  - Anisocytosis [Unknown]
  - Arthralgia [Unknown]
  - Asthenia [Unknown]
  - Vitamin D decreased [Unknown]
  - Lymphocyte count decreased [Unknown]

NARRATIVE: CASE EVENT DATE: 20210101
